FAERS Safety Report 5717915-4 (Version None)
Quarter: 2008Q2

REPORT INFORMATION
  Report Type: 
  Country: None (occurrence: None)
  Receive Date: 20080425
  Receipt Date: 20080414
  Transmission Date: 20081010
  Serious: Yes (Hospitalization)
  Sender: FDA-Public Use
  Company Number: KP-GENENTECH-259733

PATIENT
  Sex: Male
  Weight: 64.9 kg

DRUGS (8)
  1. RITUXIMAB [Suspect]
     Indication: GRAFT VERSUS HOST DISEASE
     Dosage: 652.5 MG, 1/WEEK
     Route: 042
     Dates: start: 20071228
  2. ACYCLOVIR [Concomitant]
     Indication: DRUG USE FOR UNKNOWN INDICATION
     Dates: start: 20061201
  3. IMMUNE GLOBULIN INTRAVENOUS (HUMAN) [Concomitant]
     Indication: DRUG USE FOR UNKNOWN INDICATION
     Dates: start: 20070727
  4. MISOPROSTOL [Concomitant]
     Indication: DRUG USE FOR UNKNOWN INDICATION
     Dates: start: 20071118
  5. METFORMIN HCL [Concomitant]
     Indication: DRUG USE FOR UNKNOWN INDICATION
     Dates: start: 20071121
  6. FLUCONAZOLE [Concomitant]
     Indication: DRUG USE FOR UNKNOWN INDICATION
     Dates: start: 20071018
  7. CIPROFLOXACIN [Concomitant]
     Indication: DRUG USE FOR UNKNOWN INDICATION
     Dates: start: 20080108
  8. CYMEVENE [Concomitant]
     Indication: CYTOMEGALOVIRUS INFECTION
     Dates: start: 20080321, end: 20080411

REACTIONS (2)
  - CYTOMEGALOVIRUS INFECTION [None]
  - PNEUMONIA FUNGAL [None]
